FAERS Safety Report 6265135-X (Version None)
Quarter: 2009Q2

REPORT INFORMATION
  Report Type: 
  Country: None (occurrence: None)
  Receive Date: 20090622
  Receipt Date: 20090622
  Transmission Date: 20091009
  Serious: Yes (Disabling)
  Sender: FDA-Public Use
  Company Number: None

PATIENT
  Sex: Male
  Weight: 67.1324 kg

DRUGS (2)
  1. SEROQUEL [Suspect]
     Indication: BIPOLAR I DISORDER
     Dosage: 250 MG AT NIGHT
     Dates: start: 20080101
  2. SEROQUEL [Suspect]
     Indication: BIPOLAR I DISORDER
     Dosage: 250 MG AT NIGHT
     Dates: start: 20080731

REACTIONS (1)
  - TARDIVE DYSKINESIA [None]
